FAERS Safety Report 4476755-7 (Version None)
Quarter: 2004Q4

REPORT INFORMATION
  Report Type: 
  Country: None (occurrence: None)
  Receive Date: 20041015
  Receipt Date: 20041015
  Transmission Date: 20050328
  Serious: Yes (Death)
  Sender: FDA-Public Use
  Company Number: None

PATIENT
  Age: 60 Year
  Sex: Male
  Weight: 57.1532 kg

DRUGS (7)
  1. XELODA [Suspect]
     Indication: RECTAL CANCER
     Dosage: 1500 MG BID
     Dates: start: 20040726, end: 20040828
  2. OXALIPLATIN 106 MG X 5 DOSES [Suspect]
     Dosage: 100 MG DAY 1 X 5 CYCLES
     Dates: start: 20040726
  3. OXALIPLATIN 106 MG X 5 DOSES [Suspect]
     Dosage: 100 MG DAY 1 X 5 CYCLES
     Dates: start: 20040802
  4. OXALIPLATIN 106 MG X 5 DOSES [Suspect]
     Dosage: 100 MG DAY 1 X 5 CYCLES
     Dates: start: 20040809
  5. OXALIPLATIN 106 MG X 5 DOSES [Suspect]
     Dosage: 100 MG DAY 1 X 5 CYCLES
     Dates: start: 20040816
  6. OXALIPLATIN 106 MG X 5 DOSES [Suspect]
     Dosage: 100 MG DAY 1 X 5 CYCLES
     Dates: start: 20040823
  7. IMMODIUM 4 [Concomitant]

REACTIONS (5)
  - DEHYDRATION [None]
  - DIARRHOEA [None]
  - LEUKOPENIA [None]
  - MYOCARDIAL INFARCTION [None]
  - NEUTROPENIA [None]
